FAERS Safety Report 7470571-X (Version None)
Quarter: 2011Q2

REPORT INFORMATION
  Report Type: 
  Country: None (occurrence: None)
  Receive Date: 20110510
  Receipt Date: 20110506
  Transmission Date: 20111010
  Serious: Yes (Life-Threatening, Other)
  Sender: FDA-Public Use
  Company Number: GB-ASTRAZENECA-2011SE26440

PATIENT
  Age: 62 Year
  Sex: Female

DRUGS (3)
  1. POTASSIUM CHLORIDE [Suspect]
     Dosage: DAILY
     Route: 048
  2. OMEPRAZOLE [Suspect]
     Route: 048
  3. SODIUM CHLORIDE [Suspect]

REACTIONS (6)
  - RENAL FAILURE [None]
  - DYSPNOEA [None]
  - METABOLIC ACIDOSIS [None]
  - ACIDOSIS HYPERCHLORAEMIC [None]
  - RESPIRATORY FAILURE [None]
  - FATIGUE [None]
